FAERS Safety Report 5690586-1 (Version None)
Quarter: 2008Q1

REPORT INFORMATION
  Report Type: 
  Country: None (occurrence: None)
  Receive Date: 20080331
  Receipt Date: 20080331
  Transmission Date: 20080703
  Serious: Yes (Hospitalization)
  Sender: FDA-Public Use
  Company Number: None

PATIENT
  Age: 56 Year
  Sex: Female
  Weight: 74.8435 kg

DRUGS (1)
  1. XELODA [Suspect]
     Indication: COLON CANCER
     Dosage: TAKE 2 TABLETS 2 TIMES DAILY PO
     Route: 048
     Dates: start: 20080307, end: 20080315

REACTIONS (3)
  - ABDOMINAL PAIN [None]
  - ARTERIOSPASM CORONARY [None]
  - BACK PAIN [None]
